FAERS Safety Report 4924822-3 (Version None)
Quarter: 2006Q1

REPORT INFORMATION
  Report Type: 
  Country: None (occurrence: None)
  Receive Date: 20060227
  Receipt Date: 20050324
  Transmission Date: 20060701
  Serious: Yes (Hospitalization, Disabling)
  Sender: FDA-Public Use
  Company Number: US-MERCK-0503USA04666

PATIENT
  Age: 37 Year
  Sex: Female
  Weight: 66 kg

DRUGS (3)
  1. VIOXX [Suspect]
     Indication: ARTHRITIS
     Route: 048
     Dates: start: 19990101, end: 20040101
  2. ZYPREXA [Concomitant]
     Route: 065
  3. DEPAKOTE [Concomitant]
     Route: 065

REACTIONS (6)
  - BREAST CYST [None]
  - CARDIAC DISORDER [None]
  - GALLBLADDER DISORDER [None]
  - GLAUCOMA [None]
  - MENTAL DISORDER [None]
  - PALPITATIONS [None]
